FAERS Safety Report 8485922 (Version 2)
Quarter: 2012Q4

REPORT INFORMATION
  Report Type: 
  Country: BR (occurrence: BR)
  Receive Date: 20120331
  Receipt Date: 20121025
  Transmission Date: 20130627
  Serious: Yes (Other)
  Sender: FDA-Public Use
  Company Number: BR-AMGEN-BRASP2012018659

PATIENT
  Age: 42 Year
  Sex: Female
  Weight: 76 kg

DRUGS (3)
  1. ENBREL [Suspect]
     Indication: ANKYLOSING SPONDYLITIS
     Dosage: 50 mg, qwk
     Route: 058
     Dates: start: 20100915
  2. ENBREL [Suspect]
     Dosage: 50 mg, qwk
     Route: 058
     Dates: start: 2011
  3. ENBREL [Suspect]
     Dosage: UNK
     Route: 058

REACTIONS (4)
  - Dengue fever [Unknown]
  - Application site pain [Unknown]
  - Influenza [Unknown]
  - Injection site pain [Unknown]
